FAERS Safety Report 23757314 (Version 1)
Quarter: 2024Q2

REPORT INFORMATION
  Report Type: Spontaneous
  Country: US (occurrence: None)
  Receive Date: 20240418
  Receipt Date: 20240418
  Transmission Date: 20240716
  Serious: No
  Sender: FDA-Public Use
  Company Number: None

PATIENT
  Age: 72 Year
  Sex: Female

DRUGS (1)
  1. RINVOQ [Suspect]
     Active Substance: UPADACITINIB
     Indication: Rheumatoid arthritis
     Dosage: OTHER QUANTITY : TAKE 2 TABLET;?FREQUENCY : DAILY;?
     Route: 048
     Dates: start: 202308

REACTIONS (3)
  - Influenza [None]
  - Herpes zoster [None]
  - Therapy cessation [None]
